FAERS Safety Report 21340213 (Version 3)
Quarter: 2022Q4

REPORT INFORMATION
  Report Type: Spontaneous
  Country: JP (occurrence: JP)
  Receive Date: 20220916
  Receipt Date: 20221219
  Transmission Date: 20230113
  Serious: Yes (Hospitalization, Disabling, Other)
  Sender: FDA-Public Use
  Company Number: JP-ONO-2022JP025251

PATIENT
  Age: 61 Year
  Sex: Male
  Weight: 56.3 kg

DRUGS (2)
  1. OPDIVO [Suspect]
     Active Substance: NIVOLUMAB
     Indication: Transitional cell carcinoma
     Dosage: 240 MG, Q2W
     Route: 041
     Dates: start: 20220513, end: 20220610
  2. ACETAMINOPHEN [Concomitant]
     Active Substance: ACETAMINOPHEN
     Indication: Pain
     Dosage: UNK, PRN (WHEN HAVING PAIN)
     Route: 048

REACTIONS (12)
  - Pneumothorax [Unknown]
  - Encephalitis [Recovering/Resolving]
  - Visual acuity reduced [Unknown]
  - Pyrexia [Unknown]
  - Back pain [Unknown]
  - Movement disorder [Unknown]
  - Altered state of consciousness [Recovered/Resolved]
  - Malaise [Unknown]
  - Cytomegalovirus enterocolitis [Unknown]
  - Immune-mediated enterocolitis [Unknown]
  - Diarrhoea [Unknown]
  - Condition aggravated [Recovered/Resolved]

NARRATIVE: CASE EVENT DATE: 20220602
